FAERS Safety Report 5278298-X (Version None)
Quarter: 2007Q1

REPORT INFORMATION
  Report Type: 
  Country: None (occurrence: None)
  Receive Date: 20070328
  Receipt Date: 20070316
  Transmission Date: 20070707
  Serious: Yes (Hospitalization, Disabling, Other)
  Sender: FDA-Public Use
  Company Number: JP-BRISTOL-MYERS SQUIBB COMPANY-13582275

PATIENT
  Age: 31 Year
  Sex: Male

DRUGS (4)
  1. EFAVIRENZ [Suspect]
     Indication: HIV INFECTION
     Route: 048
     Dates: start: 20030328, end: 20040527
  2. EPIVIR [Suspect]
     Indication: HIV INFECTION
     Dosage: DOSING BEGAN 20-APR-05. INTERRUPTED 27-MAY-2004. RESTARTED 20-APR-2005. DISCONTINUED 13-JUN-2005.
     Route: 048
     Dates: start: 20030328, end: 20050613
  3. RETROVIR [Suspect]
     Indication: HIV INFECTION
     Dosage: DECREASED TO 400 MG OD, FROM 06-MAY-03 TO 27-MAY-04.
     Route: 048
     Dates: start: 20030328, end: 20040527
  4. PENFILL [Concomitant]

REACTIONS (2)
  - RENAL IMPAIRMENT [None]
  - SCHIZOPHRENIA [None]
